FAERS Safety Report 14393356 (Version 1)
Quarter: 2018Q1

REPORT INFORMATION
  Report Type: Spontaneous
  Country: US (occurrence: US)
  Receive Date: 20180114
  Receipt Date: 20180114
  Transmission Date: 20180509
  Serious: Yes (Life-Threatening, Hospitalization, Disabling)
  Sender: FDA-Public Use
  Company Number: None

PATIENT
  Age: 21 Year
  Sex: Male
  Weight: 90 kg

DRUGS (2)
  1. DOXYCYLINE HYCLATE [Suspect]
     Active Substance: DOXYCYCLINE HYCLATE
     Indication: LYME DISEASE
     Dosage: ?          QUANTITY:1 CAPSULE(S);?
     Route: 048
     Dates: start: 20170514, end: 20170529
  2. B-COMPLEX V ITAMINS [Concomitant]

REACTIONS (8)
  - Therapy cessation [None]
  - Suicidal ideation [None]
  - Anxiety [None]
  - Depression [None]
  - Irritability [None]
  - Withdrawal syndrome [None]
  - Mood swings [None]
  - Aggression [None]

NARRATIVE: CASE EVENT DATE: 20170514
